FAERS Safety Report 10021347 (Version 1)
Quarter: 2014Q1

REPORT INFORMATION
  Report Type: Spontaneous
  Country: US (occurrence: US)
  Receive Date: 20140319
  Receipt Date: 20140319
  Transmission Date: 20141002
  Serious: No
  Sender: FDA-Public Use
  Company Number: US-B.I. PHARMACEUTICALS,INC./RIDGEFIELD-2014-BI-10819BP

PATIENT
  Age: 61 Year
  Sex: Male
  Weight: 100 kg

DRUGS (13)
  1. COMBIVENT [Suspect]
     Indication: DYSPNOEA
     Dosage: STRENGTH: 20 MCG / 100 MCG; DAILY DOSE: 80 MCG / 400 MCG
     Route: 055
     Dates: start: 201401
  2. COMBIVENT [Suspect]
     Indication: LUNG LOBECTOMY
  3. ALBUTEROL INHALER [Concomitant]
     Indication: LUNG NEOPLASM MALIGNANT
     Dosage: FORMULATION: INHALATION AEROSOL
     Route: 055
  4. MAGNESIUM OXIDE [Concomitant]
     Dosage: 425 MG
     Route: 048
  5. SYNTHROID [Concomitant]
     Indication: THYROIDECTOMY
     Dosage: 0.075 MG
     Route: 048
  6. METHADONE [Concomitant]
     Indication: PAIN
     Dosage: 40 MG
     Route: 048
  7. METHOCARBAMOL [Concomitant]
     Indication: MUSCLE SPASMS
     Dosage: 1500 MG
     Route: 048
  8. METOPROLOL [Concomitant]
     Indication: HYPERTENSION
     Dosage: 12.5 MG
     Route: 048
  9. NAPROSYN [Concomitant]
     Indication: PAIN
     Dosage: 1000 MG
     Route: 048
  10. OMEPRAZOLE [Concomitant]
     Indication: GASTROOESOPHAGEAL REFLUX DISEASE
     Dosage: 20 MG
     Route: 048
  11. TESTOSTERONE INJECTIONS [Concomitant]
     Dosage: 28.5714 MG
     Route: 030
  12. LORAZEPAM [Concomitant]
     Indication: ANXIETY
     Dosage: 1 MG
     Route: 048
  13. ASPIRIN [Concomitant]
     Dosage: 81 MG
     Route: 048

REACTIONS (2)
  - Rash [Not Recovered/Not Resolved]
  - Off label use [Unknown]
